FAERS Safety Report 16620555 (Version 1)
Quarter: 2019Q3

REPORT INFORMATION
  Report Type: Spontaneous
  Country: RU (occurrence: RU)
  Receive Date: 20190723
  Receipt Date: 20190723
  Transmission Date: 20191004
  Serious: Yes (Other)
  Sender: FDA-Public Use
  Company Number: RU-ELI_LILLY_AND_COMPANY-RU201907011286

PATIENT
  Age: 35 Year
  Sex: Female

DRUGS (2)
  1. ERBITUX [Suspect]
     Active Substance: CETUXIMAB
     Indication: SQUAMOUS CELL CARCINOMA OF SKIN
     Dosage: 400 MG/M2, UNK
     Route: 042
     Dates: start: 201812
  2. ERBITUX [Suspect]
     Active Substance: CETUXIMAB
     Dosage: 250 MG/M2, WEEKLY (1/W)
     Route: 042

REACTIONS (11)
  - Malignant neoplasm progression [Unknown]
  - Off label use [Unknown]
  - Anaemia [Unknown]
  - Hypoalbuminaemia [Unknown]
  - Pain [Recovered/Resolved]
  - Thrombocytosis [Unknown]
  - Weight decreased [Unknown]
  - Lymphadenopathy [Unknown]
  - Leukocytosis [Unknown]
  - Metastases to lymph nodes [Unknown]
  - C-reactive protein increased [Unknown]

NARRATIVE: CASE EVENT DATE: 2019
